FAERS Safety Report 7061463-9 (Version None)
Quarter: 2010Q4

REPORT INFORMATION
  Report Type: 
  Country: None (occurrence: None)
  Receive Date: 20101026
  Receipt Date: 20101013
  Transmission Date: 20110411
  Serious: Yes (Other)
  Sender: FDA-Public Use
  Company Number: CA-ELI_LILLY_AND_COMPANY-CA201010002803

PATIENT
  Sex: Male

DRUGS (8)
  1. ZYPREXA [Suspect]
     Dosage: 5 MG, DAILY (1/D)
     Route: 065
  2. LIPITOR [Concomitant]
     Dosage: UNK, UNKNOWN
     Route: 065
  3. WARFARIN SODIUM [Concomitant]
     Dosage: UNK, UNKNOWN
     Route: 065
  4. CELEXA [Concomitant]
     Dosage: 20 MG, DAILY (1/D)
     Route: 065
  5. CELEXA [Concomitant]
     Dosage: 40 MG, DAILY (1/D)
     Route: 065
  6. CELEXA [Concomitant]
     Dosage: 20 MG, 2 1/2 DAILY (1/D)
     Route: 048
  7. VIAGRA [Concomitant]
     Dosage: 100 MG, AS NEEDED
     Route: 048
  8. ANDROGEL [Concomitant]
     Dosage: UNK, UNKNOWN
     Route: 065

REACTIONS (6)
  - DEEP VEIN THROMBOSIS [None]
  - DIABETES MELLITUS [None]
  - DIABETIC NEUROPATHY [None]
  - ERECTILE DYSFUNCTION [None]
  - HYPERGLYCAEMIA [None]
  - VISUAL IMPAIRMENT [None]
